FAERS Safety Report 15347169 (Version 1)
Quarter: 2018Q3

REPORT INFORMATION
  Report Type: Spontaneous
  Country: US (occurrence: US)
  Receive Date: 20180904
  Receipt Date: 20180904
  Transmission Date: 20181010
  Serious: No
  Sender: FDA-Public Use
  Company Number: US-BAYER-2018-164618

PATIENT
  Age: 68 Year
  Sex: Female
  Weight: 76 kg

DRUGS (1)
  1. MIRALAX [Suspect]
     Active Substance: POLYETHYLENE GLYCOL 3350
     Indication: CONSTIPATION PROPHYLAXIS
     Dosage: 1 DF, UNK
     Route: 048
     Dates: start: 20180522, end: 20180830

REACTIONS (7)
  - Arthralgia [Not Recovered/Not Resolved]
  - Abnormal faeces [Unknown]
  - Faeces pale [Not Recovered/Not Resolved]
  - Product use in unapproved indication [Unknown]
  - Myalgia [Not Recovered/Not Resolved]
  - Bone pain [Not Recovered/Not Resolved]
  - Off label use [Unknown]

NARRATIVE: CASE EVENT DATE: 20180522
